FAERS Safety Report 8855041 (Version 2)
Quarter: 2012Q4

REPORT INFORMATION
  Report Type: 
  Country: JP (occurrence: JP)
  Receive Date: 20121023
  Receipt Date: 20121227
  Transmission Date: 20130627
  Serious: Yes (Hospitalization)
  Sender: FDA-Public Use
  Company Number: JP-009507513-1210JPN008824

PATIENT
  Age: 68 Year
  Sex: Male
  Weight: 74 kg

DRUGS (14)
  1. PEGINTRON [Suspect]
     Indication: CHRONIC HEPATITIS C
     Dosage: 1.5 Microgram per kilogram, qw
     Route: 058
     Dates: start: 20120817
  2. REBETOL [Suspect]
     Indication: CHRONIC HEPATITIS C
     Dosage: 800 mg, qd
     Route: 048
     Dates: start: 20120817, end: 20120923
  3. REBETOL [Suspect]
     Dosage: 400 mg, qd
     Route: 048
     Dates: start: 20120924, end: 20121003
  4. REBETOL [Suspect]
     Dosage: 200 mg, qd
     Route: 048
     Dates: start: 20121004, end: 20121107
  5. TELAVIC [Suspect]
     Indication: CHRONIC HEPATITIS C
     Dosage: 1500 mg, qd
     Route: 048
     Dates: start: 20120817
  6. TELAVIC [Suspect]
     Dosage: UNK
     Route: 048
     Dates: end: 20121003
  7. TELAVIC [Suspect]
     Dosage: 750 mg, qd
     Route: 048
     Dates: start: 20121004, end: 20121107
  8. URSO [Concomitant]
     Indication: CHRONIC HEPATITIS C
     Dosage: 300 mg, qd
     Route: 048
     Dates: end: 20120829
  9. KINEDAK [Concomitant]
     Indication: DIABETIC NEUROPATHY
     Dosage: 150 mg, qd
     Route: 048
     Dates: end: 20120829
  10. AMLODIN OD [Concomitant]
     Indication: HYPERTENSION
     Dosage: Formulation:POR 5 mg, qd
     Route: 048
  11. BLOPRESS [Concomitant]
     Indication: HYPERTENSION
     Dosage: Formulation:POR 12 mg, qd
     Route: 048
  12. FLUITRAN [Concomitant]
     Indication: HYPERTENSION
     Dosage: 2 mg, qd
     Route: 048
  13. BAYASPIRIN [Concomitant]
     Indication: PROPHYLAXIS
     Dosage: Formulation:POR 100 mg, qd
  14. BAYASPIRIN [Concomitant]
     Indication: DISEASE COMPLICATION

REACTIONS (1)
  - Anaemia [Not Recovered/Not Resolved]
